FAERS Safety Report 6840232-6 (Version None)
Quarter: 2010Q3

REPORT INFORMATION
  Report Type: 
  Country: None (occurrence: None)
  Receive Date: 20100714
  Receipt Date: 20100630
  Transmission Date: 20110219
  Serious: Yes (Hospitalization, Other)
  Sender: FDA-Public Use
  Company Number: PHHY2010PL43855

PATIENT
  Sex: Female

DRUGS (4)
  1. MYFORTIC [Suspect]
     Indication: RENAL TRANSPLANT
     Dosage: 720 MG, UNK
     Route: 048
     Dates: start: 20100404, end: 20100626
  2. PROGRAF [Concomitant]
     Indication: RENAL TRANSPLANT
     Dosage: 6 MG
     Dates: start: 20100404
  3. ENCORTON [Concomitant]
     Indication: RENAL TRANSPLANT
     Dosage: 20 MG
     Dates: start: 20100404
  4. BISEPTOL [Concomitant]
     Indication: ANTIFUNGAL PROPHYLAXIS

REACTIONS (6)
  - CYTOMEGALOVIRUS INFECTION [None]
  - DIARRHOEA [None]
  - LEUKOPENIA [None]
  - PYREXIA [None]
  - SERUM FERRITIN INCREASED [None]
  - TRANSPLANT REJECTION [None]
